FAERS Safety Report 7064399-2 (Version None)
Quarter: 2010Q4

REPORT INFORMATION
  Report Type: 
  Country: None (occurrence: None)
  Receive Date: 20101027
  Receipt Date: 20101014
  Transmission Date: 20110411
  Serious: Yes (Hospitalization, Other)
  Sender: FDA-Public Use
  Company Number: PHHY2010US69433

PATIENT
  Sex: Male

DRUGS (1)
  1. GLEEVEC [Suspect]
     Indication: CHRONIC MYELOID LEUKAEMIA
     Dosage: 200 MG, QD
     Route: 048
     Dates: start: 20100401

REACTIONS (6)
  - ASTHENIA [None]
  - FALL [None]
  - HEAD INJURY [None]
  - MALAISE [None]
  - MEMORY IMPAIRMENT [None]
  - TRAUMATIC BRAIN INJURY [None]
